FAERS Safety Report 13506072 (Version 1)
Quarter: 2017Q2

REPORT INFORMATION
  Report Type: Spontaneous
  Country: US (occurrence: US)
  Receive Date: 20170502
  Receipt Date: 20170502
  Transmission Date: 20170830
  Serious: No
  Sender: FDA-Public Use
  Company Number: US-ROCHE-1483528

PATIENT
  Sex: Female

DRUGS (3)
  1. DOXIL [Concomitant]
     Active Substance: DOXORUBICIN HYDROCHLORIDE
  2. IXABEPILONE [Concomitant]
     Active Substance: IXABEPILONE
  3. AVASTIN [Suspect]
     Active Substance: BEVACIZUMAB
     Indication: UTERINE CANCER
     Route: 065
     Dates: start: 20131226

REACTIONS (2)
  - No adverse event [Unknown]
  - Drug administration error [Unknown]
